FAERS Safety Report 6036034-3 (Version None)
Quarter: 2009Q1

REPORT INFORMATION
  Report Type: 
  Country: None (occurrence: None)
  Receive Date: 20090113
  Receipt Date: 20090106
  Transmission Date: 20090719
  Serious: Yes (Hospitalization)
  Sender: FDA-Public Use
  Company Number: US-PFIZER INC-2008099834

PATIENT
  Sex: Male
  Weight: 103.42 kg

DRUGS (14)
  1. BLINDED *PLACEBO [Suspect]
     Indication: OSTEOARTHRITIS
     Dosage: UNK
     Route: 048
     Dates: start: 20071018
  2. BLINDED CELECOXIB [Suspect]
     Indication: OSTEOARTHRITIS
     Dosage: UNK
     Route: 048
     Dates: start: 20071018
  3. IBUPROFEN TABLETS [Suspect]
     Indication: OSTEOARTHRITIS
     Dosage: UNK
     Route: 048
     Dates: start: 20071018
  4. NAPROXEN [Suspect]
     Indication: OSTEOARTHRITIS
     Dosage: UNK
     Route: 048
     Dates: start: 20071018
  5. BLINDED *PLACEBO [Suspect]
     Indication: RHEUMATOID ARTHRITIS
  6. BLINDED CELECOXIB [Suspect]
     Indication: RHEUMATOID ARTHRITIS
  7. IBUPROFEN TABLETS [Suspect]
     Indication: RHEUMATOID ARTHRITIS
  8. NAPROXEN [Suspect]
     Indication: RHEUMATOID ARTHRITIS
  9. NEXIUM [Concomitant]
     Route: 048
     Dates: start: 20071018
  10. GLYBURIDE [Concomitant]
     Route: 048
     Dates: start: 20071025
  11. METFORMIN [Concomitant]
     Route: 048
     Dates: start: 20071025
  12. DIOVAN HCT [Concomitant]
     Route: 048
     Dates: start: 20071211
  13. PREGABALIN [Concomitant]
     Route: 048
     Dates: start: 20080213
  14. ACETYLSALICYLIC ACID [Concomitant]
     Dosage: UNK
     Route: 048
     Dates: start: 20071221

REACTIONS (1)
  - ARTHRALGIA [None]
